FAERS Safety Report 7648893-9 (Version None)
Quarter: 2011Q3

REPORT INFORMATION
  Report Type: 
  Country: None (occurrence: None)
  Receive Date: 20110801
  Receipt Date: 20110720
  Transmission Date: 20111222
  Serious: Yes (Death)
  Sender: FDA-Public Use
  Company Number: CN-GENENTECH-321764

PATIENT
  Sex: Female
  Weight: 77 kg

DRUGS (3)
  1. OMALIZUMAB [Suspect]
     Indication: ASTHMA
     Dosage: UNK MG, UNK
     Route: 058
     Dates: start: 20110620
  2. SERETIDE [Concomitant]
     Indication: ASTHMA
     Dosage: UNK
     Dates: start: 20110201
  3. ALBUTEROL [Concomitant]
     Indication: PRODUCT USED FOR UNKNOWN INDICATION

REACTIONS (1)
  - ASTHMA [None]
